FAERS Safety Report 17637817 (Version 1)
Quarter: 2020Q2

REPORT INFORMATION
  Report Type: Spontaneous
  Country: GB (occurrence: GB)
  Receive Date: 20200407
  Receipt Date: 20200407
  Transmission Date: 20200713
  Serious: Yes (Other)
  Sender: FDA-Public Use
  Company Number: GB-TEVA-2020-GB-1220054

PATIENT
  Age: 55 Year
  Sex: Female
  Weight: 64 kg

DRUGS (7)
  1. CLARITHROMYCIN. [Suspect]
     Active Substance: CLARITHROMYCIN
     Indication: OROPHARYNGEAL PAIN
     Dosage: 500MG OR 250MG. 2 DOSAGE FORMS
     Route: 048
     Dates: start: 20200320, end: 20200322
  2. LANSOPRAZOLE. [Concomitant]
     Active Substance: LANSOPRAZOLE
     Dosage: EVERY MORNING, 30 MINUTES BEFORE FOOD. 15 MG
     Dates: start: 20200220
  3. HYOSCINE BUTYLBROMIDE [Concomitant]
     Active Substance: BUTYLSCOPOLAMINE BROMIDE
     Dosage: 2 WHEN REQUIRED MAX 8 TABLETS A DAY. 20 MG
     Dates: start: 20200316
  4. LAXIDO [Concomitant]
     Active Substance: POLYETHYLENE GLYCOL 3350\POTASSIUM CHLORIDE\SODIUM BICARBONATE\SODIUM CHLORIDE
     Dosage: 3-4 SACHETS OVER 3 HOURS AND THEN 1 TWICE DAILY LONGER TERM
     Dates: start: 20200318
  5. PROPRANOLOL [Concomitant]
     Active Substance: PROPRANOLOL HYDROCHLORIDE
     Indication: ANXIETY
     Dosage: FOUR TIMES A DAY. 10 MG
     Dates: start: 20200318
  6. ACIDEX [Concomitant]
     Active Substance: CALCIUM CARBONATE\SODIUM ALGINATE\SODIUM BICARBONATE
     Dosage: 20 MINUTES AFTER FOOD AND AT NIGHT 30 ML
     Dates: start: 20200318
  7. NAPROXEN. [Concomitant]
     Active Substance: NAPROXEN
     Dosage: WITH FOOD. 1000 MG
     Dates: start: 20200220

REACTIONS (2)
  - Swelling face [Unknown]
  - Erythema [Recovering/Resolving]
